FAERS Safety Report 9954034 (Version 1)
Quarter: 2014Q1

REPORT INFORMATION
  Report Type: Spontaneous
  Country: US (occurrence: US)
  Receive Date: 20140304
  Receipt Date: 20140304
  Transmission Date: 20141002
  Serious: No
  Sender: FDA-Public Use
  Company Number: US-AMGEN-USASP2013087605

PATIENT
  Age: 62 Year
  Sex: Female
  Weight: 29.03 kg

DRUGS (10)
  1. ENBREL [Suspect]
     Indication: PRODUCT USED FOR UNKNOWN INDICATION
     Dosage: 50 MG, QWK
     Route: 058
  2. AMLODIPINE [Concomitant]
     Dosage: 5 MG, UNK
  3. ATENOLOL [Concomitant]
     Dosage: 25 MG, UNK
  4. METFORMIN [Concomitant]
     Dosage: 850 MG, UNK
  5. CICLOPIROX [Concomitant]
     Dosage: SOL 8%
  6. HYDROCORT                          /00028602/ [Concomitant]
     Dosage: 0.5 %
  7. ATORVASTATIN [Concomitant]
     Dosage: 10 MG, UNK
  8. VITAMIN D                          /00107901/ [Concomitant]
     Dosage: 1000 UNIT, UNK
  9. DERMA-SMOOTHE/FS [Concomitant]
     Dosage: UNK
  10. CALCITRIOL [Concomitant]
     Dosage: 3 MCG/GM

REACTIONS (1)
  - Arthralgia [Unknown]
